FAERS Safety Report 23282769 (Version 1)
Quarter: 2023Q4

REPORT INFORMATION
  Report Type: Spontaneous
  Country: US (occurrence: US)
  Receive Date: 20231211
  Receipt Date: 20231211
  Transmission Date: 20240109
  Serious: Yes (Other)
  Sender: FDA-Public Use
  Company Number: US-ENDO-CASE-0049332

PATIENT
  Sex: Male

DRUGS (8)
  1. ACETAMINOPHEN\OXYCODONE HYDROCHLORIDE [Suspect]
     Active Substance: ACETAMINOPHEN\OXYCODONE HYDROCHLORIDE
  2. OPANA ER [Suspect]
     Active Substance: OXYMORPHONE HYDROCHLORIDE
  3. TRAMADOL HYDROCHLORIDE [Suspect]
     Active Substance: TRAMADOL HYDROCHLORIDE
  4. PERCOCET [Suspect]
     Active Substance: ACETAMINOPHEN\OXYCODONE HYDROCHLORIDE
  5. OXYMORPHONE HYDROCHLORIDE [Suspect]
     Active Substance: OXYMORPHONE HYDROCHLORIDE
  6. MORPHINE SULFATE [Suspect]
     Active Substance: MORPHINE SULFATE
  7. OXYCONTIN [Suspect]
     Active Substance: OXYCODONE HYDROCHLORIDE
  8. OXYCODONE [Suspect]
     Active Substance: OXYCODONE

REACTIONS (2)
  - Dependence [Unknown]
  - Withdrawal syndrome [Unknown]
